FAERS Safety Report 7041016-9 (Version None)
Quarter: 2010Q4

REPORT INFORMATION
  Report Type: 
  Country: None (occurrence: None)
  Receive Date: 20101013
  Receipt Date: 20101008
  Transmission Date: 20110411
  Serious: Yes (Death)
  Sender: FDA-Public Use
  Company Number: PHHY2010AU61334

PATIENT
  Sex: Male

DRUGS (3)
  1. CLOZARIL [Suspect]
     Dosage: 75 MG, UNK
     Dates: start: 20080306
  2. PHENOTHIAZINE [Concomitant]
  3. RISPERIDONE [Concomitant]
     Indication: SCHIZOPHRENIA

REACTIONS (3)
  - DEATH [None]
  - LEFT ATRIAL DILATATION [None]
  - PARAESTHESIA [None]
